FAERS Safety Report 17875644 (Version 1)
Quarter: 2020Q2

REPORT INFORMATION
  Report Type: Spontaneous
  Country: US (occurrence: US)
  Receive Date: 20200609
  Receipt Date: 20200609
  Transmission Date: 20200714
  Serious: Yes (Hospitalization)
  Sender: FDA-Public Use
  Company Number: None

PATIENT
  Age: 75 Year
  Sex: Female
  Weight: 49.5 kg

DRUGS (12)
  1. DIAZEPAM. [Concomitant]
     Active Substance: DIAZEPAM
  2. LEVALBUTEROL. [Concomitant]
     Active Substance: LEVALBUTEROL
  3. MULTIVITAMIN [Concomitant]
     Active Substance: VITAMINS
  4. PLAVIX [Concomitant]
     Active Substance: CLOPIDOGREL BISULFATE
  5. PSEUDOEPHEDRINE. [Concomitant]
     Active Substance: PSEUDOEPHEDRINE HYDROCHLORIDE
  6. LOPRESSOR [Suspect]
     Active Substance: METOPROLOL TARTRATE
     Indication: HYPERTENSION
     Dosage: ?          QUANTITY:1 TABLET(S);?
     Route: 048
     Dates: start: 20200512, end: 20200607
  7. ROBAXIN [Concomitant]
     Active Substance: METHOCARBAMOL
  8. NORVASC [Concomitant]
     Active Substance: AMLODIPINE BESYLATE
  9. ATROVENT [Concomitant]
     Active Substance: IPRATROPIUM BROMIDE
  10. ELDERBERRY [Concomitant]
     Active Substance: HERBALS
  11. TRAMADOL. [Concomitant]
     Active Substance: TRAMADOL
  12. DIOVAN [Concomitant]
     Active Substance: VALSARTAN

REACTIONS (2)
  - Syncope [None]
  - Dizziness [None]

NARRATIVE: CASE EVENT DATE: 20200607
